FAERS Safety Report 13188620 (Version 1)
Quarter: 2017Q1

REPORT INFORMATION
  Report Type: Spontaneous
  Country: US (occurrence: US)
  Receive Date: 20170204
  Receipt Date: 20170204
  Transmission Date: 20170428
  Serious: Yes (Life-Threatening, Other)
  Sender: FDA-Public Use
  Company Number: None

PATIENT
  Age: 43 Year
  Sex: Female
  Weight: 110.2 kg

DRUGS (3)
  1. OXYCODONE [Concomitant]
     Active Substance: OXYCODONE
  2. PROTONIX [Suspect]
     Active Substance: PANTOPRAZOLE SODIUM
     Indication: GASTROOESOPHAGEAL REFLUX DISEASE
     Dosage: ?          QUANTITY:30 TABLET(S);?
     Route: 048
     Dates: start: 20140601
  3. LANSOPRAZOLE DR [Concomitant]

REACTIONS (5)
  - Restless legs syndrome [None]
  - Nerve injury [None]
  - Similar reaction on previous exposure to drug [None]
  - Pain [None]
  - Anaphylactic shock [None]

NARRATIVE: CASE EVENT DATE: 20140601
